FAERS Safety Report 5041342-9 (Version None)
Quarter: 2006Q2

REPORT INFORMATION
  Report Type: 
  Country: None (occurrence: None)
  Receive Date: 20060628
  Receipt Date: 20060616
  Transmission Date: 20061013
  Serious: Yes (Other)
  Sender: FDA-Public Use
  Company Number: A-CH2006-12479

PATIENT
  Age: 39 Year
  Sex: Male

DRUGS (7)
  1. TRACLEER [Suspect]
     Indication: SKIN ULCER
     Dosage: 62.5 MG, BID, ORAL
     Route: 048
     Dates: start: 20060427, end: 20060504
  2. ILOMEDINE         (ILOPROST) [Concomitant]
  3. PLAQUENIL [Concomitant]
  4. DI-ANTALVIC           (PARACETAMOL, DEXTROPOXYPHENE HYDROCHLORIDE) [Concomitant]
  5. CORTAN [Concomitant]
  6. ENALAPRIL MALEATE [Concomitant]
  7. DILTIAZEM HYDROCHLORIDE [Concomitant]

REACTIONS (1)
  - HEPATITIS [None]
